FAERS Safety Report 23634421 (Version 5)
Quarter: 2024Q4

REPORT INFORMATION
  Report Type: Report from Study
  Country: US (occurrence: US)
  Receive Date: 20240314
  Receipt Date: 20241006
  Transmission Date: 20250114
  Serious: Yes (Hospitalization, Other)
  Sender: ABBVIE
  Company Number: US-ABBVIE-5679181

PATIENT
  Sex: Female
  Weight: 63 kg

DRUGS (11)
  1. RINVOQ [Suspect]
     Active Substance: UPADACITINIB
     Indication: Rheumatoid arthritis
     Dosage: FORM STRENGTH: 15 MG
     Route: 048
     Dates: end: 20240124
  2. RINVOQ [Suspect]
     Active Substance: UPADACITINIB
     Indication: Rheumatoid arthritis
     Dosage: FORM STRENGTH: 15 MG
     Route: 048
     Dates: start: 2020, end: 2021
  3. RINVOQ [Suspect]
     Active Substance: UPADACITINIB
     Indication: Rheumatoid arthritis
     Dosage: FORM STRENGTH: 15 MG
     Route: 048
     Dates: start: 202402
  4. PREDNISONE [Concomitant]
     Active Substance: PREDNISONE
     Indication: Fasciitis
     Dosage: FORM STRENGTH: 5 MG?FREQUENCY TEXT: ONE A DAY
  5. GABAPENTIN [Concomitant]
     Active Substance: GABAPENTIN
     Indication: Neuropathy peripheral
     Dosage: FORM STRENGTH: 300 MG?FREQUENCY TEXT: ONE IN THE MORNING, TWO AT NIGHT
  6. CALTRATE [Concomitant]
     Active Substance: CALCIUM CARBONATE
     Indication: Mineral supplementation
  7. OXYBUTYNIN [Concomitant]
     Active Substance: OXYBUTYNIN
     Indication: Bladder spasm
     Dosage: FORM STRENGTH: 5 MG?FREQUENCY TEXT: ONE IN THE MORNING AND ONE AT NIGHT
  8. DULOXETINE [Concomitant]
     Active Substance: DULOXETINE
     Indication: Depression
     Dosage: FORM STRENGTH: 60 MG?FREQUENCY TEXT: ONE DAILY
  9. ISOSORBIDE [Concomitant]
     Active Substance: ISOSORBIDE
     Indication: Oxygen therapy
     Dosage: FORM STRENGTH: 30 MG
  10. MONTELUKAST [Concomitant]
     Active Substance: MONTELUKAST
     Indication: Multiple allergies
     Dosage: FORM STRENGTH: 10 MG
  11. MINERALS\VITAMINS [Concomitant]
     Active Substance: MINERALS\VITAMINS
     Indication: Product used for unknown indication
     Dosage: FOR WOMEN?FREQUENCY TEXT: ONE A DAY

REACTIONS (7)
  - Intervertebral disc displacement [Recovered/Resolved]
  - Mobility decreased [Recovered/Resolved]
  - Neuralgia [Recovering/Resolving]
  - Neuropathy peripheral [Recovering/Resolving]
  - Gait disturbance [Recovered/Resolved]
  - Spinal osteoarthritis [Recovered/Resolved]
  - Sciatica [Recovering/Resolving]

NARRATIVE: CASE EVENT DATE: 20220101
